FAERS Safety Report 21756015 (Version 1)
Quarter: 2022Q4

REPORT INFORMATION
  Report Type: Report from Study
  Country: US (occurrence: US)
  Receive Date: 20221220
  Receipt Date: 20221220
  Transmission Date: 20230113
  Serious: No
  Sender: FDA-Public Use
  Company Number: US-LUNDBECK-DKLU3055550

PATIENT
  Age: 69 Year
  Sex: Female

DRUGS (1)
  1. VYEPTI [Suspect]
     Active Substance: EPTINEZUMAB-JJMR
     Indication: Migraine
     Route: 041
     Dates: start: 20221025

REACTIONS (5)
  - Headache [Not Recovered/Not Resolved]
  - Gait disturbance [Unknown]
  - Eye pain [Unknown]
  - Vision blurred [Unknown]
  - Drug ineffective [Unknown]
